FAERS Safety Report 5590209-6 (Version None)
Quarter: 2008Q1

REPORT INFORMATION
  Report Type: 
  Country: None (occurrence: None)
  Receive Date: 20080114
  Receipt Date: 20080107
  Transmission Date: 20080703
  Serious: Yes (Hospitalization, Other)
  Sender: FDA-Public Use
  Company Number: US-ASTRAZENECA-2008UW00492

PATIENT
  Age: 1000 Month
  Sex: Female
  Weight: 118.2 kg

DRUGS (6)
  1. FASLODEX [Suspect]
     Indication: BREAST CANCER METASTATIC
     Dates: start: 20050826, end: 20051118
  2. ARIMIDEX [Suspect]
     Indication: BREAST CANCER METASTATIC
     Route: 048
     Dates: start: 20050826, end: 20051217
  3. LISINOPRIL [Suspect]
     Route: 048
  4. OXY IR [Suspect]
     Dosage: 2 TO 4 TABS EVERY 3 HOURS PRN
     Route: 048
  5. TENORMIN [Suspect]
     Route: 048
  6. VICODIN [Suspect]
     Dosage: 1-2 TABS EVERY FOUR HOURS PRN
     Route: 048

REACTIONS (5)
  - DEHYDRATION [None]
  - HYPOTENSION [None]
  - INFECTION [None]
  - ORAL INTAKE REDUCED [None]
  - PLEURAL EFFUSION [None]
